FAERS Safety Report 5279342-6 (Version None)
Quarter: 2007Q1

REPORT INFORMATION
  Report Type: 
  Country: None (occurrence: None)
  Receive Date: 20070328
  Receipt Date: 20060313
  Transmission Date: 20070707
  Serious: No
  Sender: FDA-Public Use
  Company Number: US-AMGEN-US164456

PATIENT
  Sex: Female
  Weight: 79.9 kg

DRUGS (4)
  1. NEULASTA [Suspect]
     Indication: CHEMOTHERAPY
     Route: 058
     Dates: start: 20060110, end: 20060110
  2. TAXOTERE [Concomitant]
     Route: 065
     Dates: start: 20060109
  3. CYTOXAN [Concomitant]
     Route: 065
     Dates: start: 20060109
  4. ADRIAMYCIN PFS [Concomitant]
     Route: 065
     Dates: start: 20060109

REACTIONS (3)
  - ERYTHEMA [None]
  - HYPERSENSITIVITY [None]
  - RASH PRURITIC [None]
